FAERS Safety Report 13189042 (Version 1)
Quarter: 2017Q1

REPORT INFORMATION
  Report Type: Spontaneous
  Country: US (occurrence: US)
  Receive Date: 20170203
  Receipt Date: 20170203
  Transmission Date: 20170428
  Serious: Yes (Other)
  Sender: FDA-Public Use
  Company Number: None

PATIENT
  Age: 51 Year
  Sex: Female
  Weight: 69.75 kg

DRUGS (1)
  1. COPAXONE [Suspect]
     Active Substance: GLATIRAMER ACETATE
     Indication: MULTIPLE SCLEROSIS
     Dosage: ?          QUANTITY:1 INJECTION(S);OTHER FREQUENCY:3XWEEK;OTHER ROUTE:ROTATE SIGHTS?
     Dates: start: 20160915, end: 20170105

REACTIONS (8)
  - Tremor [None]
  - Chest pain [None]
  - Nausea [None]
  - Immediate post-injection reaction [None]
  - Hyperhidrosis [None]
  - Heart rate increased [None]
  - Urinary incontinence [None]
  - Dyspnoea [None]

NARRATIVE: CASE EVENT DATE: 20170105
